FAERS Safety Report 8573604 (Version 7)
Quarter: 2012Q4

REPORT INFORMATION
  Report Type: 
  Country: DE (occurrence: DE)
  Receive Date: 20120522
  Receipt Date: 20120829
  Transmission Date: 20130627
  Serious: Yes (Life-Threatening, Hospitalization, Other)
  Sender: FDA-Public Use
  Company Number: DE-BAYER-2012-049969

PATIENT
  Age: 86 Year
  Sex: Female

DRUGS (4)
  1. GADOVIST [Suspect]
     Indication: COMPUTERISED TOMOGRAM
     Dosage: UNK UNK, ONCE
     Route: 008
     Dates: start: 20120515, end: 20120515
  2. LIPOTALON [Concomitant]
     Indication: ANALGESIC THERAPY
     Dosage: 1 ml, UNK
     Dates: start: 20120515
  3. BUPIVACAINE [Concomitant]
     Indication: ANALGESIC THERAPY
     Dosage: 2 ml, UNK
     Dates: start: 20120515
  4. CARBOSTESIN [BUPIVACAINE HYDROCHLORIDE] [Concomitant]
     Indication: ANALGESIC THERAPY
     Dosage: 2 ml, UNK
     Dates: start: 20120515

REACTIONS (12)
  - Encephalopathy [Recovered/Resolved]
  - Pain [Recovered/Resolved]
  - Feeling hot [Recovered/Resolved]
  - Myoclonus [Recovered/Resolved]
  - Nystagmus [Recovered/Resolved]
  - Delirium [Recovered/Resolved]
  - Dyskinesia [Recovered/Resolved]
  - Somnolence [Recovered/Resolved]
  - Agitation [Recovered/Resolved]
  - Respiratory failure [Recovered/Resolved]
  - Pneumonia [Recovering/Resolving]
  - Pyrexia [Recovering/Resolving]
